FAERS Safety Report 7583850-2 (Version None)
Quarter: 2011Q2

REPORT INFORMATION
  Report Type: 
  Country: None (occurrence: None)
  Receive Date: 20110630
  Receipt Date: 20110622
  Transmission Date: 20111010
  Serious: Yes (Other)
  Sender: FDA-Public Use
  Company Number: DE-JNJFOC-20110507768

PATIENT
  Sex: Male
  Weight: 82 kg

DRUGS (2)
  1. NICOTINE [Suspect]
     Route: 062
  2. NICOTINE [Suspect]
     Indication: PRODUCT USED FOR UNKNOWN INDICATION
     Route: 062

REACTIONS (5)
  - WRONG DRUG ADMINISTERED [None]
  - BLOOD PRESSURE INCREASED [None]
  - OVERDOSE [None]
  - CARDIAC FLUTTER [None]
  - RASH [None]
